FAERS Safety Report 9323481 (Version 2)
Quarter: 2013Q2

REPORT INFORMATION
  Report Type: Spontaneous
  Country: US (occurrence: US)
  Receive Date: 20130603
  Receipt Date: 20130621
  Transmission Date: 20140414
  Serious: Yes (Other)
  Sender: FDA-Public Use
  Company Number: US-PFIZER INC-2013164177

PATIENT
  Age: 57 Year
  Sex: Female
  Weight: 61.7 kg

DRUGS (4)
  1. MS CONTIN [Suspect]
     Indication: PAIN IN EXTREMITY
     Dosage: UNK
  2. NEURONTIN [Suspect]
     Dosage: UNK
  3. DILAUDID [Suspect]
     Dosage: UNK
     Route: 042
  4. PERCOCET [Suspect]
     Dosage: UNK

REACTIONS (3)
  - Delirium [Unknown]
  - Sedation [Unknown]
  - Drug ineffective [Unknown]
